FAERS Safety Report 23129580 (Version 2)
Quarter: 2023Q4

REPORT INFORMATION
  Report Type: Spontaneous
  Country: US (occurrence: None)
  Receive Date: 20231031
  Receipt Date: 20231114
  Transmission Date: 20240109
  Serious: No
  Sender: FDA-Public Use
  Company Number: 2023A241559

PATIENT
  Age: 80 Year
  Sex: Female

DRUGS (1)
  1. SYMBICORT [Suspect]
     Active Substance: BUDESONIDE\FORMOTEROL FUMARATE DIHYDRATE
     Dosage: 20 PUFFS UNKNOWN
     Route: 055

REACTIONS (6)
  - Malaise [Unknown]
  - Arthralgia [Unknown]
  - Neuralgia [Unknown]
  - Stress [Unknown]
  - Device use issue [Unknown]
  - Device defective [Unknown]
